FAERS Safety Report 12997868 (Version 1)
Quarter: 2016Q4

REPORT INFORMATION
  Report Type: Report from Study
  Country: NL (occurrence: NL)
  Receive Date: 20161205
  Receipt Date: 20161205
  Transmission Date: 20170207
  Serious: Yes (Hospitalization, Other)
  Sender: FDA-Public Use
  Company Number: NL-AMGEN-NLDSL2016168862

PATIENT
  Sex: Male

DRUGS (10)
  1. XGEVA [Suspect]
     Active Substance: DENOSUMAB
     Indication: METASTASES TO BONE
  2. ACENOCOUMAROL PCH [Concomitant]
     Dosage: 1 MG, QD
     Dates: start: 20161121
  3. CALCI CHEW D3 [Concomitant]
     Active Substance: CALCIUM CARBONATE\CHOLECALCIFEROL
     Dosage: 1.25G/400IE
     Route: 048
     Dates: start: 20160629
  4. ENALAPRIL MALEAT [Concomitant]
     Dosage: 5 MG, QD
     Dates: start: 20160629
  5. METOPROLOL SUCCINATE. [Concomitant]
     Active Substance: METOPROLOL SUCCINATE
     Dosage: 50 MG, QD
     Dates: start: 20161121
  6. MOVICOLON [Concomitant]
     Active Substance: POLYETHYLENE GLYCOL 3350\POTASSIUM CHLORIDE\SODIUM BICARBONATE\SODIUM CHLORIDE
     Dosage: UNK UNK, QD
     Dates: start: 20160629
  7. PRIMPERAN [Concomitant]
     Active Substance: METOCLOPRAMIDE HYDROCHLORIDE
     Dosage: 5 MG/ML, QD
     Dates: start: 20161121
  8. FUROSEMIDE CF [Concomitant]
     Dosage: 40 MG, UNK
     Dates: start: 20160822
  9. OXYCODON HCL GL [Concomitant]
     Dosage: 5 MG, QD
     Dates: start: 20161125
  10. XGEVA [Suspect]
     Active Substance: DENOSUMAB
     Indication: PROSTATE CANCER
     Dosage: 120 MG/1.70 ML, Q4WK
     Route: 058
     Dates: start: 20150422

REACTIONS (11)
  - Hypotension [Unknown]
  - Nausea [Unknown]
  - Dizziness [Unknown]
  - Liver function test abnormal [Unknown]
  - Constipation [Unknown]
  - Dehydration [Unknown]
  - Blood lactate dehydrogenase abnormal [Unknown]
  - Vomiting [Unknown]
  - Ileus [Unknown]
  - Prerenal failure [Unknown]
  - Malaise [Unknown]
